FAERS Safety Report 11540711 (Version 2)
Quarter: 2015Q4

REPORT INFORMATION
  Report Type: Spontaneous
  Country: US (occurrence: US)
  Receive Date: 20150923
  Receipt Date: 20151013
  Transmission Date: 20160304
  Serious: No
  Sender: FDA-Public Use
  Company Number: US-GLAXOSMITHKLINE-US2015135128

PATIENT
  Age: 73 Year
  Sex: Male

DRUGS (21)
  1. ALPHAGAN P [Concomitant]
     Active Substance: BRIMONIDINE TARTRATE
  2. LESCOL XL [Concomitant]
     Active Substance: FLUVASTATIN SODIUM
  3. TOPROL XL [Concomitant]
     Active Substance: METOPROLOL SUCCINATE
  4. TRAVATAN Z [Concomitant]
     Active Substance: TRAVOPROST
  5. PROTONIX [Concomitant]
     Active Substance: PANTOPRAZOLE SODIUM
  6. VITAMIN D [Concomitant]
     Active Substance: CHOLECALCIFEROL
  7. DIMETAPP COLD + ALLERGY ELIXIR [Concomitant]
  8. FIBERCON [Concomitant]
     Active Substance: CALCIUM POLYCARBOPHIL
  9. MOTRIN [Concomitant]
     Active Substance: IBUPROFEN
  10. ASPIRIN. [Concomitant]
     Active Substance: ASPIRIN
  11. TEMAZEPAM. [Concomitant]
     Active Substance: TEMAZEPAM
  12. COQ 10 [Concomitant]
     Active Substance: UBIDECARENONE
  13. TYLENOL [Concomitant]
     Active Substance: ACETAMINOPHEN
  14. NIASPAN [Concomitant]
     Active Substance: NIACIN
  15. VERAMYST [Suspect]
     Active Substance: FLUTICASONE FUROATE
     Indication: MULTIPLE ALLERGIES
     Dosage: UNK, QD
     Route: 045
     Dates: start: 201405
  16. BENADRYL [Concomitant]
     Active Substance: DIPHENHYDRAMINE HYDROCHLORIDE
  17. PLAVIX [Concomitant]
     Active Substance: CLOPIDOGREL BISULFATE
  18. VITAMIN C [Concomitant]
     Active Substance: ASCORBIC ACID
  19. DIAZEPAM. [Concomitant]
     Active Substance: DIAZEPAM
  20. FISH OIL [Concomitant]
     Active Substance: FISH OIL
  21. NITROSTAT SL [Concomitant]

REACTIONS (1)
  - Rhinorrhoea [Recovered/Resolved]

NARRATIVE: CASE EVENT DATE: 201407
